FAERS Safety Report 7383724-6 (Version None)
Quarter: 2011Q1

REPORT INFORMATION
  Report Type: 
  Country: None (occurrence: None)
  Receive Date: 20110330
  Receipt Date: 20110318
  Transmission Date: 20110831
  Serious: Yes (Death, Other)
  Sender: FDA-Public Use
  Company Number: US-PFIZER INC-HQWYE992212APR05

PATIENT
  Sex: Female
  Weight: 58 kg

DRUGS (1)
  1. PREMPRO [Suspect]
     Indication: HORMONE REPLACEMENT THERAPY
     Dosage: UNK
     Route: 048
     Dates: start: 19990101, end: 20010101

REACTIONS (4)
  - BREAST CANCER METASTATIC [None]
  - BRAIN CANCER METASTATIC [None]
  - DEMENTIA [None]
  - BONE NEOPLASM MALIGNANT [None]
